FAERS Safety Report 9245182 (Version 6)
Quarter: 2022Q3

REPORT INFORMATION
  Report Type: Report from Study
  Country: TW (occurrence: TW)
  Receive Date: 20130422
  Receipt Date: 20220818
  Transmission Date: 20221027
  Serious: Yes (Hospitalization, Other)
  Sender: FDA-Public Use
  Company Number: TW-SHIRE-ALL1-2013-02402

PATIENT
  Age: 33 Year
  Sex: Male

DRUGS (49)
  1. IDURSULFASE [Suspect]
     Active Substance: IDURSULFASE
     Indication: Mucopolysaccharidosis II
     Dosage: UNK
     Route: 042
     Dates: start: 20090506
  2. IDURSULFASE [Suspect]
     Active Substance: IDURSULFASE
     Dosage: 0.5 MILLIGRAM/KILOGRAM
     Route: 041
     Dates: start: 20090517
  3. IDURSULFASE [Suspect]
     Active Substance: IDURSULFASE
     Dosage: 0.5 MILLIGRAM/KILOGRAM, 1X/WEEK (EVERY WEEK)
     Route: 042
     Dates: start: 20100304
  4. IDURSULFASE [Suspect]
     Active Substance: IDURSULFASE
     Dosage: 0.5 MILLIGRAM/KILOGRAM, 1X/WEEK (EVERY WEEK)
     Route: 042
     Dates: start: 20141013
  5. NEOSTIGMINE [Concomitant]
     Active Substance: NEOSTIGMINE
     Indication: Eye disorder
     Dosage: UNK, UNKNOWN
     Route: 047
     Dates: start: 20091002
  6. CHLORPHENIRAMINE [Concomitant]
     Active Substance: CHLORPHENIRAMINE
     Indication: Premedication
     Dosage: 0.5 MILLIGRAM
     Route: 042
  7. CHLORPHENIRAMINE [Concomitant]
     Active Substance: CHLORPHENIRAMINE
     Dosage: UNK
     Route: 042
     Dates: start: 20111201, end: 20111201
  8. CHLORPHENIRAMINE [Concomitant]
     Active Substance: CHLORPHENIRAMINE
     Dosage: UNK
     Route: 042
     Dates: start: 20120906, end: 20120906
  9. CHLORPHENIRAMINE [Concomitant]
     Active Substance: CHLORPHENIRAMINE
     Dosage: UNK
     Route: 042
     Dates: start: 20130328, end: 20130328
  10. CHLORPHENIRAMINE [Concomitant]
     Active Substance: CHLORPHENIRAMINE
     Dosage: UNK
     Route: 048
     Dates: start: 20140306, end: 20140306
  11. CHLORPHENIRAMINE [Concomitant]
     Active Substance: CHLORPHENIRAMINE
     Dosage: UNK
     Route: 048
     Dates: start: 20141002, end: 20141002
  12. CHLORPHENIRAMINE [Concomitant]
     Active Substance: CHLORPHENIRAMINE
     Dosage: UNK
     Route: 042
     Dates: start: 20150611, end: 20150611
  13. CHLORPHENIRAMINE [Concomitant]
     Active Substance: CHLORPHENIRAMINE
     Dosage: UNK
     Route: 042
     Dates: start: 20151224, end: 20151224
  14. CHLORPHENIRAMINE [Concomitant]
     Active Substance: CHLORPHENIRAMINE
     Dosage: UNK
     Route: 042
     Dates: start: 20160630, end: 20160630
  15. CHLORPHENIRAMINE [Concomitant]
     Active Substance: CHLORPHENIRAMINE
     Dosage: UNK
     Route: 042
     Dates: start: 20161201, end: 20161201
  16. CHLORPHENIRAMINE [Concomitant]
     Active Substance: CHLORPHENIRAMINE
     Dosage: UNK
     Route: 042
     Dates: start: 20170608, end: 20170608
  17. CHLORPHENIRAMINE [Concomitant]
     Active Substance: CHLORPHENIRAMINE
     Dosage: UNK
     Route: 042
     Dates: start: 20171228, end: 20171228
  18. CHLORPHENIRAMINE [Concomitant]
     Active Substance: CHLORPHENIRAMINE
     Dosage: UNK
     Route: 042
     Dates: start: 20180607, end: 20180607
  19. Paramol [Concomitant]
     Indication: Pain
     Dosage: UNK
     Route: 048
     Dates: start: 20090529, end: 20090610
  20. BISOLVON [Concomitant]
     Active Substance: BROMHEXINE HYDROCHLORIDE
     Indication: Respiratory disorder
     Dosage: UNK
     Route: 048
     Dates: start: 20090529, end: 20090610
  21. Brown mixture [Concomitant]
     Indication: Respiratory disorder
     Dosage: UNK
     Route: 048
     Dates: start: 20090529, end: 20090626
  22. Brown mixture [Concomitant]
     Indication: Antitussive therapy
     Dosage: UNK
     Route: 048
     Dates: start: 20111025, end: 20111103
  23. Brown mixture [Concomitant]
     Dosage: UNK
     Route: 048
     Dates: start: 20180607
  24. Rotec [Concomitant]
     Indication: Respiratory disorder
     Dosage: UNK
     Route: 048
     Dates: start: 20090529, end: 20090610
  25. DEXTROMETHORPHAN HYDROBROMIDE [Concomitant]
     Active Substance: DEXTROMETHORPHAN HYDROBROMIDE
     Indication: Respiratory disorder
     Dosage: UNK
     Route: 048
     Dates: start: 20090610, end: 20090619
  26. DEXTROMETHORPHAN HYDROBROMIDE [Concomitant]
     Active Substance: DEXTROMETHORPHAN HYDROBROMIDE
     Dosage: UNK
     Route: 048
     Dates: start: 20160303, end: 20160308
  27. NEOSTIGMINE METHYLSULFATE [Concomitant]
     Active Substance: NEOSTIGMINE METHYLSULFATE
     Dosage: UNK
     Route: 050
     Dates: start: 20091002
  28. AMBROXOL [Concomitant]
     Active Substance: AMBROXOL
     Indication: Respiratory disorder
     Dosage: UNK
     Route: 048
     Dates: start: 20111025, end: 20111103
  29. AMBROXOL [Concomitant]
     Active Substance: AMBROXOL
     Indication: Productive cough
     Dosage: UNK
     Route: 048
     Dates: start: 20160218, end: 20160221
  30. AMBROXOL [Concomitant]
     Active Substance: AMBROXOL
     Dosage: UNK
     Route: 048
     Dates: start: 20170607, end: 20180617
  31. ALBUTEROL [Concomitant]
     Active Substance: ALBUTEROL
     Indication: Respiratory disorder
     Dosage: UNK
     Route: 048
     Dates: start: 20111025, end: 20111103
  32. NEOMYCIN SULFATE [Concomitant]
     Active Substance: NEOMYCIN SULFATE
     Indication: Infection
     Dosage: UNK
     Route: 061
     Dates: start: 20160218, end: 20160221
  33. NEOMYCIN SULFATE [Concomitant]
     Active Substance: NEOMYCIN SULFATE
     Dosage: UNK
     Route: 061
     Dates: start: 20160225, end: 20160228
  34. NEOMYCIN SULFATE [Concomitant]
     Active Substance: NEOMYCIN SULFATE
     Dosage: UNK
     Route: 061
     Dates: start: 20191205, end: 20191208
  35. Becantex [Concomitant]
     Indication: Cough
     Dosage: UNK
     Route: 048
     Dates: start: 20160218, end: 20160221
  36. CETIRIZINE [Concomitant]
     Active Substance: CETIRIZINE HYDROCHLORIDE
     Indication: Hypersensitivity
     Dosage: UNK
     Route: 048
     Dates: start: 20160218, end: 20160221
  37. CYPRODINE [Concomitant]
     Indication: Hypersensitivity
     Dosage: UNK
     Route: 048
     Dates: start: 20160303, end: 20160308
  38. VENTOLIN [Concomitant]
     Active Substance: ALBUTEROL SULFATE
     Indication: Pharyngitis
     Dosage: UNK
     Route: 048
     Dates: start: 20180607, end: 20180617
  39. VENTOLIN [Concomitant]
     Active Substance: ALBUTEROL SULFATE
     Dosage: UNK
     Route: 055
     Dates: start: 20200110, end: 20200113
  40. ACETYLCYSTEINE [Concomitant]
     Active Substance: ACETYLCYSTEINE
     Dosage: UNK
     Route: 048
     Dates: start: 20191125, end: 20191206
  41. AMSULBER CYH [Concomitant]
     Indication: Cellulitis
     Dosage: UNK
     Route: 042
     Dates: start: 20191125, end: 20191129
  42. ACETAMINOPHEN [Concomitant]
     Active Substance: ACETAMINOPHEN
     Indication: Pain
     Dosage: UNK
     Route: 048
     Dates: start: 20191125, end: 20191202
  43. ACETAMINOPHEN [Concomitant]
     Active Substance: ACETAMINOPHEN
     Dosage: UNK
     Route: 048
     Dates: start: 20200110, end: 20200114
  44. AMOXICILLIN\CLAVULANATE POTASSIUM [Concomitant]
     Active Substance: AMOXICILLIN\CLAVULANATE POTASSIUM
     Indication: Cellulitis
     Dosage: UNK
     Route: 048
     Dates: start: 20191129, end: 20191202
  45. LORATADINE AND PSEUDOEPHEDRINE SULFATE [Concomitant]
     Active Substance: LORATADINE\PSEUDOEPHEDRINE SULFATE
     Indication: Hypersensitivity
     Dosage: UNK
     Route: 048
     Dates: start: 20200110, end: 20200117
  46. AZITHROMYCIN [Concomitant]
     Active Substance: AZITHROMYCIN
     Indication: Antibiotic therapy
     Dosage: UNK
     Route: 048
     Dates: start: 20200110, end: 20200113
  47. CODICON U [Concomitant]
     Indication: Antitussive therapy
     Dosage: UNK
     Route: 048
     Dates: start: 20200110, end: 20200117
  48. DIMEMORFAN [Concomitant]
     Active Substance: DIMEMORFAN
     Indication: Antitussive therapy
     Dosage: UNK
     Route: 048
     Dates: start: 20200113, end: 20200114
  49. MIXAPIN [Concomitant]
     Dosage: UNK
     Route: 048
     Dates: start: 20200113, end: 20200117

REACTIONS (3)
  - Abdominal adhesions [Recovered/Resolved]
  - Intestinal obstruction [Recovered/Resolved]
  - Peripheral artery aneurysm [Recovered/Resolved]

NARRATIVE: CASE EVENT DATE: 20100909
